FAERS Safety Report 5740787-9 (Version None)
Quarter: 2008Q2

REPORT INFORMATION
  Report Type: 
  Country: None (occurrence: None)
  Receive Date: 20080516
  Receipt Date: 20080509
  Transmission Date: 20081010
  Serious: Yes (Other)
  Sender: FDA-Public Use
  Company Number: GB-ABBOTT-08P-167-0451166-00

PATIENT
  Age: 36 Year
  Sex: Female

DRUGS (8)
  1. VALPROIC ACID [Suspect]
     Indication: AFFECTIVE DISORDER
     Dosage: 1500 MG DAILY
     Route: 048
     Dates: start: 20080222, end: 20080415
  2. BECLOMETHASONE DIPROPIONATE [Concomitant]
     Indication: DRUG USE FOR UNKNOWN INDICATION
     Route: 055
  3. TRIHEXYPHENIDYL HCL [Concomitant]
     Indication: DRUG USE FOR UNKNOWN INDICATION
     Route: 048
     Dates: start: 20070101
  4. CITALOPRAM HYDROBROMIDE [Concomitant]
     Indication: DEPRESSION
     Dosage: 20 MG
     Route: 048
     Dates: start: 20070201
  5. FISH OIL [Concomitant]
     Indication: DRUG USE FOR UNKNOWN INDICATION
     Dosage: 1100 MG
     Route: 048
  6. MINOCYCLINE HCL [Concomitant]
     Indication: ACNE
     Dosage: 100 MG
     Route: 048
  7. PRIMULA SPP. FLOWER [Concomitant]
     Indication: DRUG USE FOR UNKNOWN INDICATION
     Dosage: 1 DOSAGE FORM
     Route: 065
     Dates: start: 20060101
  8. QUETIAPINE FUMARATE [Concomitant]
     Indication: PSYCHOTIC DISORDER
     Dosage: 400 MG
     Route: 048
     Dates: start: 20060101

REACTIONS (2)
  - LEUKOPENIA [None]
  - NEUTROPENIA [None]
